FAERS Safety Report 13096377 (Version 1)
Quarter: 2017Q1

REPORT INFORMATION
  Report Type: Spontaneous
  Country: US (occurrence: US)
  Receive Date: 20170106
  Receipt Date: 20170106
  Transmission Date: 20170428
  Serious: Yes (Hospitalization)
  Sender: FDA-Public Use
  Company Number: None

PATIENT
  Age: 69 Year
  Sex: Male
  Weight: 49.7 kg

DRUGS (3)
  1. DEXAMETHASONE. [Suspect]
     Active Substance: DEXAMETHASONE
     Dates: end: 20161223
  2. VELCADE [Suspect]
     Active Substance: BORTEZOMIB
     Dates: end: 20161222
  3. LENALIDOMIDE (CC-5013) [Suspect]
     Active Substance: LENALIDOMIDE
     Dates: end: 20161225

REACTIONS (2)
  - Respiratory syncytial virus test positive [None]
  - Pneumonia [None]

NARRATIVE: CASE EVENT DATE: 20170103
